FAERS Safety Report 13858550 (Version 1)
Quarter: 2017Q3

REPORT INFORMATION
  Report Type: Spontaneous
  Country: US (occurrence: US)
  Receive Date: 20170810
  Receipt Date: 20170810
  Transmission Date: 20171127
  Serious: Yes (Other)
  Sender: FDA-Public Use
  Company Number: None

PATIENT
  Sex: Female
  Weight: 69.75 kg

DRUGS (1)
  1. HYDROXYCHLOROQUINE SULFATE. [Suspect]
     Active Substance: HYDROXYCHLOROQUINE SULFATE
     Indication: LICHEN PLANUS
     Dosage: ?          QUANTITY:1 TABLET(S);?
     Route: 048
     Dates: start: 20170727, end: 20170801

REACTIONS (8)
  - Dry skin [None]
  - Feeling hot [None]
  - Skin discolouration [None]
  - Haemorrhage [None]
  - Pruritus [None]
  - Hepatic enzyme increased [None]
  - Rash [None]
  - Pain [None]

NARRATIVE: CASE EVENT DATE: 20170727
